FAERS Safety Report 23416252 (Version 1)
Quarter: 2024Q1

REPORT INFORMATION
  Report Type: Spontaneous
  Country: CA (occurrence: CA)
  Receive Date: 20240118
  Receipt Date: 20240118
  Transmission Date: 20240410
  Serious: Yes (Other)
  Sender: FDA-Public Use
  Company Number: CA-MYLANLABS-2024M1004416

PATIENT
  Age: 40 Year
  Sex: Female
  Weight: 74 kg

DRUGS (2)
  1. ZELDOX [Suspect]
     Active Substance: ZIPRASIDONE
     Indication: Agitation
     Dosage: 2 DOSAGE FORM, QD
     Route: 048
  2. ZELDOX [Suspect]
     Active Substance: ZIPRASIDONE
     Indication: Stress

REACTIONS (4)
  - Thrombosis [Recovered/Resolved]
  - Platelet count increased [Recovered/Resolved]
  - Sinusitis [Recovered/Resolved]
  - Tooth discolouration [Recovered/Resolved]
